FAERS Safety Report 15635530 (Version 4)
Quarter: 2018Q4

REPORT INFORMATION
  Report Type: Report from Study
  Country: None (occurrence: GB)
  Receive Date: 20181120
  Receipt Date: 20181220
  Transmission Date: 20190205
  Serious: Yes (Death)
  Sender: FDA-Public Use
  Company Number: GB-ABBVIE-18S-167-2559394-00

PATIENT
  Sex: Female

DRUGS (1)
  1. DUODOPA [Suspect]
     Active Substance: CARBIDOPA\LEVODOPA
     Indication: PARKINSON^S DISEASE
     Dosage: 1 CASSETTE DAILY
     Route: 050
     Dates: end: 2018

REACTIONS (7)
  - Device dislocation [Unknown]
  - Stoma site ulcer [Unknown]
  - Dysphagia [Unknown]
  - Gastrointestinal stoma complication [Unknown]
  - Device occlusion [Unknown]
  - Stoma site extravasation [Unknown]
  - Death [Fatal]
